FAERS Safety Report 9858850 (Version 1)
Quarter: 2014Q1

REPORT INFORMATION
  Report Type: Spontaneous
  Country: DK (occurrence: None)
  Receive Date: 20140129
  Receipt Date: 20140129
  Transmission Date: 20141002
  Serious: Yes (Death)
  Sender: FDA-Public Use
  Company Number: DK-ALKEM-000469

PATIENT
  Age: 27 Year
  Sex: Male

DRUGS (1)
  1. QUETIAPINE (QUETIAPINE) [Suspect]
     Indication: ANXIETY DISORDER

REACTIONS (4)
  - Hypertriglyceridaemia [None]
  - Pancreatitis acute [None]
  - Diabetic ketoacidosis [None]
  - Multi-organ failure [None]
